FAERS Safety Report 16128141 (Version 3)
Quarter: 2019Q2

REPORT INFORMATION
  Report Type: Report from Study
  Country: US (occurrence: US)
  Receive Date: 20190328
  Receipt Date: 20190409
  Transmission Date: 20190711
  Serious: Yes (Other)
  Sender: FDA-Public Use
  Company Number: PHEH2019US012587

PATIENT
  Age: 65 Year
  Sex: Female

DRUGS (1)
  1. GLEEVEC [Suspect]
     Active Substance: IMATINIB MESYLATE
     Indication: PRODUCT USED FOR UNKNOWN INDICATION
     Dosage: 100 MG, QD
     Route: 048

REACTIONS (4)
  - Headache [Unknown]
  - Gastrointestinal neoplasm [Unknown]
  - Neoplasm progression [Unknown]
  - Panic attack [Unknown]

NARRATIVE: CASE EVENT DATE: 20190401
